FAERS Safety Report 4838454-9 (Version None)
Quarter: 2005Q4

REPORT INFORMATION
  Report Type: 
  Country: None (occurrence: None)
  Receive Date: 20051123
  Receipt Date: 20051107
  Transmission Date: 20060501
  Serious: Yes (Hospitalization)
  Sender: FDA-Public Use
  Company Number: 2005PV003940

PATIENT
  Age: 56 Year
  Sex: Female
  Weight: 94.8018 kg

DRUGS (13)
  1. BYETTA [Suspect]
     Indication: INSULIN RESISTANCE
     Dosage: 5 MCG;BID;SC
     Route: 058
     Dates: start: 20051007
  2. SPIRIVA [Suspect]
     Indication: ASTHMA
     Dosage: 1 PUFF;QD;INH
     Route: 055
     Dates: start: 20051007
  3. ZELNORM [Concomitant]
  4. TRAZODONE [Concomitant]
  5. NULEV [Concomitant]
  6. ASTRELIN [Concomitant]
  7. CEREFOLIN [Concomitant]
  8. FOSAMAX [Concomitant]
  9. LEXAPRO [Concomitant]
  10. PREVACID [Concomitant]
  11. KLONOPIN [Concomitant]
  12. SINGULAIR [Concomitant]
  13. PLAQUENIL [Concomitant]

REACTIONS (3)
  - ASTHMA [None]
  - ATRIAL FIBRILLATION [None]
  - DIZZINESS [None]
